FAERS Safety Report 25227854 (Version 1)
Quarter: 2025Q2

REPORT INFORMATION
  Report Type: Report from Study
  Country: US (occurrence: US)
  Receive Date: 20250423
  Receipt Date: 20250423
  Transmission Date: 20250717
  Serious: Yes (Other)
  Sender: ABBVIE
  Company Number: US-ABBVIE-6236642

PATIENT
  Age: 77 Year
  Sex: Female

DRUGS (2)
  1. RESTASIS [Suspect]
     Active Substance: CYCLOSPORINE
     Indication: Product used for unknown indication
     Route: 065
     Dates: start: 2019
  2. GABAPENTIN [Concomitant]
     Active Substance: GABAPENTIN
     Indication: Trigeminal neuralgia
     Dates: start: 200401

REACTIONS (3)
  - Cataract operation complication [Recovered/Resolved]
  - Trigeminal neuralgia [Unknown]
  - Eye infection [Recovered/Resolved]

NARRATIVE: CASE EVENT DATE: 20250414
